FAERS Safety Report 25493404 (Version 2)
Quarter: 2025Q3

REPORT INFORMATION
  Report Type: Spontaneous
  Country: CN (occurrence: CN)
  Receive Date: 20250630
  Receipt Date: 20250721
  Transmission Date: 20251021
  Serious: Yes (Hospitalization, Other)
  Sender: CHIA TAI TIANQING PHARMACEUTICAL GROUP
  Company Number: None

PATIENT
  Age: 61 Year
  Sex: Female
  Weight: 89.0 kg

DRUGS (10)
  1. FULVESTRANT [Suspect]
     Active Substance: FULVESTRANT
     Indication: Breast cancer
     Dosage: 5 ML, QD
     Route: 030
     Dates: start: 20240424, end: 20250402
  2. IMODIUM [Concomitant]
     Active Substance: LOPERAMIDE HYDROCHLORIDE
     Indication: Diarrhoea
     Dosage: 1 CAPSULE, QD
     Dates: start: 20241213
  3. ADEMETIONINE [Concomitant]
     Active Substance: ADEMETIONINE
     Indication: Gamma-glutamyltransferase increased
     Dosage: 1 G, QD
     Dates: start: 20250310
  4. METFORMIN [Concomitant]
     Active Substance: METFORMIN HYDROCHLORIDE
     Indication: Hyperglycaemia
     Dosage: 0.5 MG, BID
     Route: 048
     Dates: start: 202401
  5. BICYCLOL [Concomitant]
     Active Substance: BICYCLOL
     Indication: Gamma-glutamyltransferase increased
     Dosage: 50 MG, TID
     Dates: start: 20240716
  6. CALCIUM CARBONATE [Concomitant]
     Active Substance: CALCIUM CARBONATE
     Indication: Prophylaxis
     Dosage: 2.4 G, QD
     Dates: start: 202406
  7. DiYuShengBai [Concomitant]
     Indication: White blood cell count decreased
     Dosage: 300 MG, TID
     Dates: start: 20250206
  8. SILIBININ [Concomitant]
     Active Substance: SILIBININ
     Indication: Gamma-glutamyltransferase increased
     Dosage: 140 MG, TID
     Dates: start: 20241213
  9. LOPERAMIDE HYDROCHLORIDE [Concomitant]
     Active Substance: LOPERAMIDE HYDROCHLORIDE
     Indication: Diarrhoea
     Dates: start: 20241213
  10. FULVESTRANT [Suspect]
     Active Substance: FULVESTRANT
     Indication: Breast cancer
     Route: 030
     Dates: start: 20250611

REACTIONS (8)
  - Hypokalaemia [Recovered/Resolved]
  - Platelet count decreased [Recovered/Resolved]
  - Diarrhoea [Recovered/Resolved]
  - Weight decreased [Unknown]
  - Liver function test abnormal [Recovered/Resolved]
  - Ascites [Recovered/Resolved]
  - Pruritus [Recovered/Resolved]
  - Insomnia [Recovered/Resolved]

NARRATIVE: CASE EVENT DATE: 20241213
